FAERS Safety Report 7591102-X (Version None)
Quarter: 2011Q3

REPORT INFORMATION
  Report Type: 
  Country: None (occurrence: None)
  Receive Date: 20110705
  Receipt Date: 20110624
  Transmission Date: 20111222
  Serious: Yes (Hospitalization)
  Sender: FDA-Public Use
  Company Number: AT-ASTRAZENECA-2011SE38612

PATIENT
  Age: 30 Year
  Sex: Male

DRUGS (1)
  1. SEROQUEL [Suspect]
     Dosage: 30 UNITS 100 MG
     Route: 048
     Dates: start: 20110131, end: 20110131

REACTIONS (5)
  - POISONING [None]
  - SOMNOLENCE [None]
  - DIZZINESS [None]
  - OVERDOSE [None]
  - SINUS TACHYCARDIA [None]
